FAERS Safety Report 5001888-6 (Version None)
Quarter: 2006Q2

REPORT INFORMATION
  Report Type: 
  Country: None (occurrence: None)
  Receive Date: 20060512
  Receipt Date: 20060512
  Transmission Date: 20061013
  Serious: Yes (Hospitalization)
  Sender: FDA-Public Use
  Company Number: None

PATIENT
  Age: 55 Year
  Sex: Male

DRUGS (7)
  1. KETOROLAC [Suspect]
     Indication: GOUTY ARTHRITIS
     Dosage: 30MG IV Q8H  SCHEDLED
     Route: 042
     Dates: start: 20060308, end: 20060313
  2. ALBUTEROL SULFATE AUTOHALER [Concomitant]
  3. HEPARIN [Concomitant]
  4. IPRATROPIUM BR [Concomitant]
  5. MORPHINE SULFATE PCA INJ [Concomitant]
  6. POTASSIUM CHLORIDE INJ,SOLN [Concomitant]
  7. RANITIDINE/SODIUM CHLORIDE INJ,SOLN [Concomitant]

REACTIONS (4)
  - DRUG ERUPTION [None]
  - PRURITUS [None]
  - RASH GENERALISED [None]
  - RASH MACULO-PAPULAR [None]
